FAERS Safety Report 5347366-6 (Version None)
Quarter: 2007Q2

REPORT INFORMATION
  Report Type: 
  Country: None (occurrence: None)
  Receive Date: 20070606
  Receipt Date: 20070529
  Transmission Date: 20071010
  Serious: Yes (Other)
  Sender: FDA-Public Use
  Company Number: US-JNJFOC-20070600051

PATIENT
  Sex: Female
  Weight: 94.8 kg

DRUGS (2)
  1. FENTANYL TRANSDERMAL SYSTEM [Suspect]
     Indication: PAIN
     Route: 062
     Dates: start: 20070526, end: 20070528
  2. SYNTHROID [Concomitant]
     Indication: THYROID DISORDER
     Route: 048

REACTIONS (10)
  - APPLICATION SITE PRURITUS [None]
  - DIZZINESS [None]
  - EYE IRRITATION [None]
  - EYE PRURITUS [None]
  - INADEQUATE ANALGESIA [None]
  - LACRIMATION INCREASED [None]
  - NAUSEA [None]
  - PRURITUS [None]
  - SPEECH DISORDER [None]
  - WHEEZING [None]
